FAERS Safety Report 25813504 (Version 2)
Quarter: 2025Q4

REPORT INFORMATION
  Report Type: Spontaneous
  Country: US (occurrence: US)
  Receive Date: 20250917
  Receipt Date: 20251008
  Transmission Date: 20260117
  Serious: Yes (Hospitalization, Other)
  Sender: MERCK SHARP & DOHME LLC
  Company Number: US-009507513-2329951

PATIENT
  Sex: Female
  Weight: 44.633 kg

DRUGS (10)
  1. WINREVAIR [Suspect]
     Active Substance: SOTATERCEPT-CSRK
     Indication: Pulmonary arterial hypertension
     Dosage: 1 DOSAGE FORM, EVERY 3 WEEKS
     Dates: start: 202503, end: 20250831
  2. WINREVAIR [Suspect]
     Active Substance: SOTATERCEPT-CSRK
  3. WINREVAIR [Suspect]
     Active Substance: SOTATERCEPT-CSRK
  4. WINREVAIR [Suspect]
     Active Substance: SOTATERCEPT-CSRK
  5. TYVASO [Concomitant]
     Active Substance: TREPROSTINIL
  6. ELIQUIS [Suspect]
     Active Substance: APIXABAN
     Dosage: 10 MG, BIN X 5 DAYS
     Route: 048
     Dates: start: 20250825
  7. VITAMIN D [Concomitant]
     Active Substance: VITAMIN D NOS
  8. LISINOPRIL [Concomitant]
     Active Substance: LISINOPRIL
  9. MYCOPHENOLIC ACID [Concomitant]
     Active Substance: MYCOPHENOLIC ACID
  10. AMLODIPINE [Concomitant]
     Active Substance: AMLODIPINE BESYLATE
     Route: 048

REACTIONS (6)
  - Gastrointestinal angiodysplasia [Recovered/Resolved]
  - Cardiac flutter [Unknown]
  - Pulmonary embolism [Recovered/Resolved]
  - Syncope [Unknown]
  - Pericardial effusion [Recovered/Resolved]
  - Lower gastrointestinal haemorrhage [Recovering/Resolving]

NARRATIVE: CASE EVENT DATE: 20250101
